FAERS Safety Report 4798292-2 (Version None)
Quarter: 2005Q4

REPORT INFORMATION
  Report Type: 
  Country: None (occurrence: None)
  Receive Date: 20051006
  Receipt Date: 20051006
  Transmission Date: 20060501
  Serious: Yes (Hospitalization)
  Sender: FDA-Public Use
  Company Number: None

PATIENT
  Sex: Female
  Weight: 57 kg

DRUGS (1)
  1. WARFARIN   5MG [Suspect]
     Indication: ATRIAL FIBRILLATION
     Dosage: 5MG PO DAILY  (THERAPY DATES: 1/30 )
     Route: 048

REACTIONS (4)
  - FALL [None]
  - PUBIC RAMI FRACTURE [None]
  - SUBARACHNOID HAEMORRHAGE [None]
  - WRIST FRACTURE [None]
